FAERS Safety Report 13255115 (Version 1)
Quarter: 2017Q1

REPORT INFORMATION
  Report Type: Spontaneous
  Country: US (occurrence: US)
  Receive Date: 20170217
  Receipt Date: 20170217
  Transmission Date: 20170428
  Serious: No
  Sender: FDA-Public Use
  Company Number: None

PATIENT
  Age: 52 Year
  Sex: Female

DRUGS (1)
  1. HARVONI [Suspect]
     Active Substance: LEDIPASVIR\SOFOSBUVIR
     Indication: HEPATITIS C

REACTIONS (7)
  - Nausea [None]
  - Fatigue [None]
  - Gastritis [None]
  - Anxiety [None]
  - Asthenia [None]
  - Dyspepsia [None]
  - Weight decreased [None]

NARRATIVE: CASE EVENT DATE: 20170217
